FAERS Safety Report 21651111 (Version 2)
Quarter: 2022Q4

REPORT INFORMATION
  Report Type: Spontaneous
  Country: US (occurrence: US)
  Receive Date: 20221128
  Receipt Date: 20221229
  Transmission Date: 20230112
  Serious: Yes (Other)
  Sender: FDA-Public Use
  Company Number: US-PFIZER INC-PV202200111047

PATIENT
  Age: 55 Year
  Sex: Male
  Weight: 97.506 kg

DRUGS (2)
  1. LORLATINIB [Suspect]
     Active Substance: LORLATINIB
     Indication: Neoplasm malignant
     Dosage: 100 MG, DAILY
     Dates: start: 20220929, end: 20221124
  2. LORLATINIB [Suspect]
     Active Substance: LORLATINIB
     Indication: Non-small cell lung cancer stage IV

REACTIONS (6)
  - Pneumonitis [Recovered/Resolved]
  - Weight increased [Unknown]
  - Blood cholesterol increased [Unknown]
  - Cognitive disorder [Unknown]
  - Memory impairment [Unknown]
  - Feeling abnormal [Unknown]

NARRATIVE: CASE EVENT DATE: 20220101
